FAERS Safety Report 9995479 (Version 1)
Quarter: 2014Q1

REPORT INFORMATION
  Report Type: Spontaneous
  Country: US (occurrence: None)
  Receive Date: 20140307
  Receipt Date: 20140307
  Transmission Date: 20141002
  Serious: No
  Sender: FDA-Public Use
  Company Number: None

PATIENT
  Age: 44 Year
  Sex: Female
  Weight: 52.16 kg

DRUGS (5)
  1. NUCYNTA [Suspect]
     Indication: PROCEDURAL PAIN
     Route: 048
     Dates: start: 20140214, end: 20140214
  2. NUCYNTA [Suspect]
     Route: 048
     Dates: start: 20140214, end: 20140214
  3. ATENOLOL [Concomitant]
  4. NAPROXEN [Concomitant]
  5. ASPIRIN 80 MG [Concomitant]

REACTIONS (4)
  - Dizziness [None]
  - Hangover [None]
  - Movement disorder [None]
  - Activities of daily living impaired [None]
